FAERS Safety Report 21826234 (Version 2)
Quarter: 2023Q1

REPORT INFORMATION
  Report Type: Spontaneous
  Country: US (occurrence: US)
  Receive Date: 20230106
  Receipt Date: 20230310
  Transmission Date: 20230418
  Serious: Yes (Other)
  Sender: FDA-Public Use
  Company Number: US-002147023-NVSC2023US001753

PATIENT
  Sex: Female

DRUGS (1)
  1. TRILEPTAL [Suspect]
     Active Substance: OXCARBAZEPINE
     Indication: Product used for unknown indication
     Dosage: UNK, TID, (TEASPOON)
     Route: 065

REACTIONS (4)
  - Burn oral cavity [Unknown]
  - Pain [Unknown]
  - Product taste abnormal [Unknown]
  - Liquid product physical issue [Unknown]
